FAERS Safety Report 6683337-5 (Version None)
Quarter: 2010Q2

REPORT INFORMATION
  Report Type: 
  Country: None (occurrence: None)
  Receive Date: 20100415
  Receipt Date: 20100405
  Transmission Date: 20101027
  Serious: Yes (Other)
  Sender: FDA-Public Use
  Company Number: PHHY2010IT21030

PATIENT
  Age: 36 Year
  Sex: Female

DRUGS (7)
  1. OCTREOTIDE ACETATE [Suspect]
     Indication: ACROMEGALY
     Dosage: 100 UG, EVERY 2-3 HOURS
     Route: 058
  2. OCTREOTIDE ACETATE [Suspect]
     Dosage: 100 UG EVERY 1-2 H (1200-2400 UG/DAILY)
     Route: 058
  3. PHENOBARBITAL TAB [Concomitant]
     Dosage: 100 MG/DAILY
  4. LEVOTHYROXINE SODIUM [Concomitant]
     Dosage: 100 UG/DAILY
  5. IRON SUPPLEMENTS [Concomitant]
  6. FOLIC ACID [Concomitant]
  7. ASPIRIN [Concomitant]
     Dosage: 100 MG/DAILY

REACTIONS (4)
  - CAESAREAN SECTION [None]
  - DRUG EXPOSURE DURING PREGNANCY [None]
  - HEADACHE [None]
  - NORMAL NEWBORN [None]
